FAERS Safety Report 13960926 (Version 1)
Quarter: 2017Q3

REPORT INFORMATION
  Report Type: Spontaneous
  Country: GB (occurrence: GB)
  Receive Date: 20170912
  Receipt Date: 20170912
  Transmission Date: 20171128
  Serious: Yes (Life-Threatening, Hospitalization, Other)
  Sender: FDA-Public Use
  Company Number: GB-JNJFOC-20170909943

PATIENT
  Age: 87 Year
  Sex: Female
  Weight: 76 kg

DRUGS (2)
  1. XARELTO [Suspect]
     Active Substance: RIVAROXABAN
     Indication: AXILLARY VEIN THROMBOSIS
     Route: 048
     Dates: start: 20170817, end: 20170821
  2. XARELTO [Suspect]
     Active Substance: RIVAROXABAN
     Indication: AXILLARY VEIN THROMBOSIS
     Route: 048
     Dates: start: 20170727, end: 20170816

REACTIONS (3)
  - Upper gastrointestinal haemorrhage [Not Recovered/Not Resolved]
  - Hypotension [Unknown]
  - Haemodynamic instability [Unknown]

NARRATIVE: CASE EVENT DATE: 20170821
